FAERS Safety Report 18716290 (Version 1)
Quarter: 2021Q1

REPORT INFORMATION
  Report Type: Spontaneous
  Country: US (occurrence: US)
  Receive Date: 20210107
  Receipt Date: 20210107
  Transmission Date: 20210419
  Serious: Yes (Other)
  Sender: FDA-Public Use
  Company Number: None

PATIENT
  Age: 50 Year
  Sex: Female
  Weight: 58.5 kg

DRUGS (1)
  1. OXYCODONE 10MG [Suspect]
     Active Substance: OXYCODONE
     Indication: INJURY
     Dosage: ?          QUANTITY:1 TABLET(S);?
     Route: 048
     Dates: start: 20180101, end: 20210107

REACTIONS (8)
  - Tachycardia [None]
  - Dysphoria [None]
  - Headache [None]
  - Malaise [None]
  - Nausea [None]
  - Agitation [None]
  - Palpitations [None]
  - Euphoric mood [None]

NARRATIVE: CASE EVENT DATE: 20180101
